FAERS Safety Report 7055199-8 (Version None)
Quarter: 2010Q4

REPORT INFORMATION
  Report Type: 
  Country: None (occurrence: None)
  Receive Date: 20101021
  Receipt Date: 20101013
  Transmission Date: 20110411
  Serious: Yes (Other)
  Sender: FDA-Public Use
  Company Number: GB-ABBOTT-10P-167-0678407-00

PATIENT

DRUGS (1)
  1. SEVOFLURANE [Suspect]
     Indication: ANAESTHESIA
     Route: 065
     Dates: start: 20100924

REACTIONS (2)
  - UNDERDOSE [None]
  - UNWANTED AWARENESS DURING ANAESTHESIA [None]
